FAERS Safety Report 19108727 (Version 1)
Quarter: 2021Q2

REPORT INFORMATION
  Report Type: Spontaneous
  Country: MA (occurrence: MA)
  Receive Date: 20210408
  Receipt Date: 20210408
  Transmission Date: 20210717
  Serious: Yes (Other)
  Sender: FDA-Public Use
  Company Number: MA-LUPIN PHARMACEUTICALS INC.-2021-04359

PATIENT
  Age: 62 Year
  Sex: Female

DRUGS (16)
  1. TOCILIZUMAB. [Concomitant]
     Active Substance: TOCILIZUMAB
     Indication: CYTOKINE STORM
     Dosage: 8 MILLIGRAM/KILOGRAM
     Route: 065
  2. EPINEPHRINE. [Concomitant]
     Active Substance: EPINEPHRINE
     Indication: BRADYCARDIA
     Dosage: 10 MILLIGRAM EVERY 1 HR
     Route: 065
  3. AMIKACIN. [Concomitant]
     Active Substance: AMIKACIN
     Indication: ANTIBIOTIC THERAPY
     Dosage: UNK
     Route: 065
  4. NOREPINEPHRINE. [Concomitant]
     Active Substance: NOREPINEPHRINE
     Indication: HYPOTENSION
     Dosage: 1 MILLIGRAM EVERY 1 HR
     Route: 065
  5. NOREPINEPHRINE. [Concomitant]
     Active Substance: NOREPINEPHRINE
     Indication: DRUG THERAPY
  6. ENOXAPARIN [Concomitant]
     Active Substance: ENOXAPARIN
     Indication: PRODUCT USED FOR UNKNOWN INDICATION
     Dosage: UNK, 0.4X2
     Route: 065
  7. VITAMIN C [Concomitant]
     Active Substance: ASCORBIC ACID
     Indication: PRODUCT USED FOR UNKNOWN INDICATION
     Dosage: UNK
     Route: 065
  8. EPINEPHRINE. [Concomitant]
     Active Substance: EPINEPHRINE
     Indication: DRUG THERAPY
  9. PARACETAMOL [Concomitant]
     Active Substance: ACETAMINOPHEN
     Indication: PRODUCT USED FOR UNKNOWN INDICATION
     Dosage: UNK
     Route: 065
  10. ZINC SULFATE. [Concomitant]
     Active Substance: ZINC SULFATE
     Indication: PRODUCT USED FOR UNKNOWN INDICATION
     Dosage: UNK
     Route: 065
  11. HEPARIN [Concomitant]
     Active Substance: HEPARIN SODIUM
     Indication: PRODUCT USED FOR UNKNOWN INDICATION
     Dosage: 1000 UNIT, QD
     Route: 065
  12. HYDROXYCHLOROQUINE [Suspect]
     Active Substance: HYDROXYCHLOROQUINE
     Indication: COVID-19
     Dosage: UNK
     Route: 065
  13. EPINEPHRINE. [Concomitant]
     Active Substance: EPINEPHRINE
     Indication: HYPOTENSION
     Dosage: 5 MILLIGRAM EVERY 1 HR
     Route: 065
  14. VANCOMYCIN [Concomitant]
     Active Substance: VANCOMYCIN
     Indication: ANTIBIOTIC THERAPY
     Dosage: UNK
     Route: 065
  15. NOREPINEPHRINE. [Concomitant]
     Active Substance: NOREPINEPHRINE
     Indication: BRADYCARDIA
     Dosage: 12 MILLIGRAM EVERY 1 HR
     Route: 065
  16. IMIPENEM [Concomitant]
     Active Substance: IMIPENEM
     Indication: ANTIBIOTIC THERAPY
     Dosage: UNK
     Route: 065

REACTIONS (1)
  - Off label use [Unknown]
